FAERS Safety Report 20958235 (Version 1)
Quarter: 2022Q2

REPORT INFORMATION
  Report Type: Spontaneous
  Country: CA (occurrence: CA)
  Receive Date: 20220614
  Receipt Date: 20220614
  Transmission Date: 20220721
  Serious: Yes (Other)
  Sender: FDA-Public Use
  Company Number: CA-AMGEN-CANSP2022101313

PATIENT
  Age: 45 Year
  Sex: Male

DRUGS (1)
  1. ADALIMUMAB [Suspect]
     Active Substance: ADALIMUMAB
     Indication: Hidradenitis
     Dosage: 40 MILLIGRAM/8ML, QWK
     Route: 058

REACTIONS (5)
  - Condition aggravated [Unknown]
  - Cyst [Unknown]
  - Hidradenitis [Unknown]
  - Hypokinesia [Unknown]
  - Pain [Unknown]
